FAERS Safety Report 5024297-2 (Version None)
Quarter: 2006Q2

REPORT INFORMATION
  Report Type: 
  Country: None (occurrence: None)
  Receive Date: 20060613
  Receipt Date: 20060327
  Transmission Date: 20061013
  Serious: Yes (Death, Life-Threatening, Hospitalization)
  Sender: FDA-Public Use
  Company Number: PHBS2006JP04685

PATIENT
  Age: 74 Year
  Sex: Male

DRUGS (9)
  1. HEPARIN [Concomitant]
     Dates: end: 20060323
  2. DIOVAN [Suspect]
     Indication: HYPERTENSION
     Dosage: 80 MG/DAY
     Route: 048
     Dates: start: 20041101, end: 20060323
  3. CALCIUM CARBONATE [Concomitant]
     Dates: end: 20060323
  4. CLARUTE [Concomitant]
     Dates: end: 20060323
  5. FULSTAN [Concomitant]
     Dates: end: 20060323
  6. NITROGLYCERIN [Concomitant]
     Dates: end: 20060323
  7. FAMOTIDINE [Concomitant]
     Dates: end: 20060323
  8. METLIGINE [Concomitant]
     Dates: end: 20060323
  9. EVAMYL [Concomitant]
     Dates: end: 20060323

REACTIONS (7)
  - HAEMATOCRIT DECREASED [None]
  - HAEMOGLOBIN DECREASED [None]
  - MYELODYSPLASTIC SYNDROME [None]
  - NEPHROGENIC ANAEMIA [None]
  - PANCYTOPENIA [None]
  - PLATELET COUNT DECREASED [None]
  - WHITE BLOOD CELL COUNT DECREASED [None]
